FAERS Safety Report 10021330 (Version 1)
Quarter: 2014Q1

REPORT INFORMATION
  Report Type: Spontaneous
  Country: US (occurrence: None)
  Receive Date: 20140318
  Receipt Date: 20140318
  Transmission Date: 20141002
  Serious: Yes (Hospitalization, Congenital Anomaly)
  Sender: FDA-Public Use
  Company Number: None

PATIENT
  Age: 33 Year
  Sex: Female
  Weight: 97.52 kg

DRUGS (1)
  1. LEVOTHYROXIN [Suspect]
     Route: 048

REACTIONS (3)
  - Anal atresia [None]
  - Congenital spinal cord anomaly [None]
  - Maternal drugs affecting foetus [None]
